FAERS Safety Report 16842430 (Version 6)
Quarter: 2020Q2

REPORT INFORMATION
  Report Type: Report from Study
  Country: US (occurrence: US)
  Receive Date: 20190924
  Receipt Date: 20200615
  Transmission Date: 20200713
  Serious: Yes (Other)
  Sender: FDA-Public Use
  Company Number: US-PFIZER INC-2019319734

PATIENT
  Age: 76 Year
  Sex: Female

DRUGS (3)
  1. IBRANCE [Suspect]
     Active Substance: PALBOCICLIB
     Dosage: 100 MG, CYCLIC (10 DAYS AND OFF FOR 10 DAYS)
     Route: 048
  2. IBRANCE [Suspect]
     Active Substance: PALBOCICLIB
     Dosage: 100 MG, CYCLIC (21 OUT OF 28 DAYS)
     Route: 048
     Dates: start: 20191007
  3. IBRANCE [Suspect]
     Active Substance: PALBOCICLIB
     Indication: BREAST CANCER FEMALE
     Dosage: 125 MG, CYCLIC (DAILY, 21 DAYS ON AND 7 DAYS OFF)
     Route: 048
     Dates: start: 20190612, end: 2019

REACTIONS (13)
  - Diarrhoea [Unknown]
  - Constipation [Unknown]
  - Intentional product use issue [Unknown]
  - Hypotension [Unknown]
  - Pain [Unknown]
  - Product dose omission [Unknown]
  - Dizziness [Recovered/Resolved]
  - Lymphoedema [Unknown]
  - Loss of consciousness [Unknown]
  - Alopecia [Not Recovered/Not Resolved]
  - Insomnia [Unknown]
  - Fatigue [Unknown]
  - Haemoglobin decreased [Unknown]

NARRATIVE: CASE EVENT DATE: 2019
